FAERS Safety Report 7806030-1 (Version None)
Quarter: 2011Q4

REPORT INFORMATION
  Report Type: 
  Country: None (occurrence: None)
  Receive Date: 20111011
  Receipt Date: 20110929
  Transmission Date: 20120403
  Serious: Yes (Other)
  Sender: FDA-Public Use
  Company Number: AU-JNJFOC-20111002040

PATIENT
  Sex: Male

DRUGS (2)
  1. REMICADE [Suspect]
     Indication: CROHN'S DISEASE
     Route: 042
     Dates: start: 20080101
  2. METHOTREXATE [Concomitant]
     Route: 065

REACTIONS (7)
  - PRODUCTIVE COUGH [None]
  - DYSPHAGIA [None]
  - URINE OUTPUT INCREASED [None]
  - SENSATION OF FOREIGN BODY [None]
  - TREMOR [None]
  - HYPERHIDROSIS [None]
  - FEELING OF BODY TEMPERATURE CHANGE [None]
